FAERS Safety Report 11051426 (Version 1)
Quarter: 2015Q2

REPORT INFORMATION
  Report Type: Spontaneous
  Country: US (occurrence: None)
  Receive Date: 20150420
  Receipt Date: 20150420
  Transmission Date: 20150821
  Serious: Yes (Other)
  Sender: FDA-Public Use
  Company Number: None

PATIENT
  Age: 59 Year
  Sex: Female
  Weight: 54.43 kg

DRUGS (7)
  1. BONIVA [Suspect]
     Active Substance: IBANDRONATE SODIUM
     Indication: PRODUCT USED FOR UNKNOWN INDICATION
     Route: 048
  2. RESTASIS [Concomitant]
     Active Substance: CYCLOSPORINE
  3. ESTRODIAL [Concomitant]
  4. FIORICET [Concomitant]
     Active Substance: ACETAMINOPHEN\BUTALBITAL\CAFFEINE
  5. D3 [Concomitant]
     Active Substance: 25-HYDROXYCHOLECALCIFEROL, 5-TRANS-
  6. CALCIUM [Concomitant]
     Active Substance: CALCIUM
  7. BIOTIN [Concomitant]
     Active Substance: BIOTIN

REACTIONS (2)
  - Tooth fracture [None]
  - Osteogenesis imperfecta [None]

NARRATIVE: CASE EVENT DATE: 20150415
